FAERS Safety Report 20517729 (Version 1)
Quarter: 2022Q1

REPORT INFORMATION
  Report Type: Spontaneous
  Country: AU (occurrence: AU)
  Receive Date: 20220225
  Receipt Date: 20220225
  Transmission Date: 20220423
  Serious: Yes (Hospitalization, Other)
  Sender: FDA-Public Use
  Company Number: AU-MYLANLABS-2022M1015198

PATIENT
  Sex: Male

DRUGS (3)
  1. VORICONAZOLE [Suspect]
     Active Substance: VORICONAZOLE
     Indication: Bronchopulmonary aspergillosis
     Dosage: 150 MILLIGRAM, BID
     Route: 065
  2. VORICONAZOLE [Suspect]
     Active Substance: VORICONAZOLE
     Indication: Lung abscess
  3. BLEOMYCIN [Concomitant]
     Active Substance: BLEOMYCIN SULFATE
     Indication: Pericardial effusion
     Dosage: UNK, INFUSION
     Route: 065

REACTIONS (3)
  - Limb immobilisation [Recovered/Resolved]
  - Periostitis [Recovered/Resolved]
  - Squamous cell carcinoma [Recovering/Resolving]
